FAERS Safety Report 5413180-6 (Version None)
Quarter: 2007Q3

REPORT INFORMATION
  Report Type: 
  Country: None (occurrence: None)
  Receive Date: 20070716
  Receipt Date: 20070507
  Transmission Date: 20080115
  Serious: Yes (Hospitalization)
  Sender: FDA-Public Use
  Company Number: 2007000845

PATIENT
  Age: 67 Year
  Sex: Female

DRUGS (9)
  1. MACUGEN [Suspect]
     Indication: MACULAR OEDEMA
     Dosage: 0.3 MG, INTRA-VITREAL
     Dates: start: 20061001
  2. ORAL DM PILLS [Concomitant]
  3. METFORMIN HCL [Concomitant]
  4. AVANDIA [Concomitant]
  5. NOVASE (ACETYLSALICYLIC ACID) [Concomitant]
  6. PREVACID [Concomitant]
  7. IRON (IRON) [Concomitant]
  8. ASPIRIN [Concomitant]
  9. NEURONTIN [Concomitant]

REACTIONS (1)
  - THROMBOSIS [None]
